FAERS Safety Report 15143429 (Version 1)
Quarter: 2018Q3

REPORT INFORMATION
  Report Type: Spontaneous
  Country: US (occurrence: US)
  Receive Date: 20180618
  Receipt Date: 20180618
  Transmission Date: 20181010
  Serious: No
  Sender: FDA-Public Use
  Company Number: None

PATIENT
  Age: 30 Month
  Sex: Female

DRUGS (1)
  1. NPLATE [Suspect]
     Active Substance: ROMIPLOSTIM
     Indication: THROMBOCYTOPENIA
     Route: 058
     Dates: start: 20180312

REACTIONS (4)
  - Abdominal pain [None]
  - Dyspepsia [None]
  - Hypophagia [None]
  - Insomnia [None]

NARRATIVE: CASE EVENT DATE: 20180330
